FAERS Safety Report 4511475-1 (Version None)
Quarter: 2004Q4

REPORT INFORMATION
  Report Type: 
  Country: None (occurrence: None)
  Receive Date: 20041129
  Receipt Date: 20040826
  Transmission Date: 20050328
  Serious: No
  Sender: FDA-Public Use
  Company Number: US-BRISTOL-MYERS SQUIBB COMPANY-12684338

PATIENT
  Age: 10 Year
  Sex: Male

DRUGS (1)
  1. ABILIFY [Suspect]
     Indication: AUTISM
     Route: 048
     Dates: start: 20040401

REACTIONS (1)
  - VOMITING [None]
